FAERS Safety Report 7378693-9 (Version None)
Quarter: 2011Q1

REPORT INFORMATION
  Report Type: 
  Country: None (occurrence: None)
  Receive Date: 20110328
  Receipt Date: 20110318
  Transmission Date: 20110831
  Serious: Yes (Hospitalization, Other)
  Sender: FDA-Public Use
  Company Number: US-ELI_LILLY_AND_COMPANY-US201103002709

PATIENT
  Sex: Male

DRUGS (2)
  1. LANTUS [Concomitant]
     Dosage: UNK, UNKNOWN
  2. HUMALOG [Suspect]

REACTIONS (2)
  - BLOOD GLUCOSE DECREASED [None]
  - WRONG DRUG ADMINISTERED [None]
